FAERS Safety Report 11159623 (Version 1)
Quarter: 2015Q2

REPORT INFORMATION
  Report Type: Report from Study
  Country: US (occurrence: US)
  Receive Date: 20150603
  Receipt Date: 20150603
  Transmission Date: 20150821
  Serious: No
  Sender: FDA-Public Use
  Company Number: US-ABBVIE-14P-163-1271173-00

PATIENT
  Sex: Female

DRUGS (2)
  1. MARINOL [Suspect]
     Active Substance: DRONABINOL
     Indication: PROPHYLAXIS OF NAUSEA AND VOMITING
     Dosage: TOOK A FEW DAYS
     Dates: start: 201311
  2. CHEMOTHERAPEUTICS [Concomitant]
     Active Substance: UNSPECIFIED INGREDIENT
     Indication: PRODUCT USED FOR UNKNOWN INDICATION
     Dates: start: 2014

REACTIONS (1)
  - Feeling abnormal [Recovering/Resolving]
